FAERS Safety Report 8314982-9 (Version None)
Quarter: 2012Q2

REPORT INFORMATION
  Report Type: 
  Country: None (occurrence: None)
  Receive Date: 20120426
  Receipt Date: 20120118
  Transmission Date: 20120825
  Serious: No
  Sender: FDA-Public Use
  Company Number: US-MUTUAL PHARMACEUTICAL COMPANY, INC.-CLCY20120013

PATIENT
  Sex: Female
  Weight: 62.198 kg

DRUGS (1)
  1. COLCRYS [Suspect]
     Indication: FAMILIAL MEDITERRANEAN FEVER
     Route: 048
     Dates: start: 20110201, end: 20120109

REACTIONS (4)
  - MOTION SICKNESS [None]
  - NAUSEA [None]
  - OROPHARYNGEAL PAIN [None]
  - ABDOMINAL PAIN [None]
